FAERS Safety Report 13991558 (Version 3)
Quarter: 2019Q4

REPORT INFORMATION
  Report Type: Spontaneous
  Country: US (occurrence: US)
  Receive Date: 20170920
  Receipt Date: 20191108
  Transmission Date: 20200122
  Serious: No
  Sender: FDA-Public Use
  Company Number: US-JNJFOC-20170802253

PATIENT
  Age: 5 Year
  Sex: Male

DRUGS (2)
  1. RISPERIDONE. [Suspect]
     Active Substance: RISPERIDONE
     Indication: POST-TRAUMATIC STRESS DISORDER
     Dosage: VARYING DOSE 0.25 AND 0.5 MG.
     Route: 048
     Dates: start: 20020124, end: 20021116
  2. RISPERIDONE. [Suspect]
     Active Substance: RISPERIDONE
     Indication: STRESS
     Dosage: VARYING DOSE 1 MG AND 2 MG.
     Route: 048
     Dates: start: 20030708, end: 20070724

REACTIONS (4)
  - Product use in unapproved indication [Unknown]
  - Gynaecomastia [Unknown]
  - Off label use [Unknown]
  - Emotional distress [Unknown]

NARRATIVE: CASE EVENT DATE: 20020124
